FAERS Safety Report 7981048-7 (Version None)
Quarter: 2011Q4

REPORT INFORMATION
  Report Type: 
  Country: None (occurrence: None)
  Receive Date: 20111215
  Receipt Date: 20111212
  Transmission Date: 20120403
  Serious: No
  Sender: FDA-Public Use
  Company Number: US-BIOGENIDEC-2011BI047048

PATIENT
  Age: 33 Year
  Sex: Female

DRUGS (2)
  1. GABAPENTIN [Concomitant]
     Indication: CONVULSION PROPHYLAXIS
     Dates: start: 20101101
  2. TYSABRI [Suspect]
     Indication: MULTIPLE SCLEROSIS
     Route: 042
     Dates: start: 20111121

REACTIONS (5)
  - OEDEMA PERIPHERAL [None]
  - BONE PAIN [None]
  - NEURALGIA [None]
  - ARTHRALGIA [None]
  - MYALGIA [None]
